FAERS Safety Report 9757826 (Version 1)
Quarter: 2013Q4

REPORT INFORMATION
  Report Type: Spontaneous
  Country: FR (occurrence: FR)
  Receive Date: 20131216
  Receipt Date: 20131216
  Transmission Date: 20140711
  Serious: Yes (Hospitalization)
  Sender: FDA-Public Use
  Company Number: FR-BRISTOL-MYERS SQUIBB COMPANY-19898790

PATIENT
  Age: 86 Year
  Sex: Female

DRUGS (8)
  1. YERVOY [Suspect]
     Indication: METASTATIC MALIGNANT MELANOMA
     Dosage: 5 MG/ML SOLN FOR INJECTION?0.1429 MG/KG ?LAST DOSE:21JUL2013
     Route: 042
     Dates: start: 20130617
  2. CORTANCYL [Concomitant]
  3. ALDACTONE [Concomitant]
  4. ATENOLOL [Concomitant]
  5. IXPRIM [Concomitant]
  6. BEROCCA [Concomitant]
  7. MAGNESIUM + PYRIDOXINE [Concomitant]
  8. CERVOXAN [Concomitant]

REACTIONS (2)
  - Diarrhoea [Recovered/Resolved]
  - Hyponatraemia [Recovered/Resolved]
